FAERS Safety Report 23276388 (Version 1)
Quarter: 2023Q4

REPORT INFORMATION
  Report Type: Spontaneous
  Country: CN (occurrence: CN)
  Receive Date: 20231208
  Receipt Date: 20231208
  Transmission Date: 20240110
  Serious: Yes (Hospitalization, Other)
  Sender: FDA-Public Use
  Company Number: CN-GLAXOSMITHKLINE-CN2023APC169175

PATIENT

DRUGS (1)
  1. LAMICTAL [Suspect]
     Active Substance: LAMOTRIGINE
     Indication: Completed suicide
     Dosage: 50 DF, QD
     Route: 048
     Dates: start: 20231127, end: 20231127

REACTIONS (14)
  - Palpitations [Recovered/Resolved]
  - Chest discomfort [Recovered/Resolved]
  - Dizziness [Recovered/Resolved]
  - Vomiting [Recovered/Resolved]
  - Nausea [Recovered/Resolved]
  - Fatigue [Recovered/Resolved]
  - Overdose [Unknown]
  - Epilepsy [Recovered/Resolved]
  - Seizure [Recovered/Resolved]
  - Myalgia [Recovered/Resolved]
  - Listless [Recovered/Resolved]
  - Pain [Recovered/Resolved]
  - Mental disorder [Recovered/Resolved]
  - Product use in unapproved indication [Unknown]

NARRATIVE: CASE EVENT DATE: 20231128
